FAERS Safety Report 5557438-9 (Version None)
Quarter: 2007Q4

REPORT INFORMATION
  Report Type: 
  Country: None (occurrence: None)
  Receive Date: 20071211
  Receipt Date: 20071130
  Transmission Date: 20080405
  Serious: Yes (Congenital Anomaly, Other)
  Sender: FDA-Public Use
  Company Number: GXKR2007DE10315

PATIENT
  Age: 3 Month
  Sex: Female

DRUGS (1)
  1. CITALOPRAM (NGX) (CITALOPRAM) UNKNOWN [Suspect]
     Dosage: TRANSPLACENTAL

REACTIONS (5)
  - ABSCESS [None]
  - ANOMALY OF EXTERNAL EAR CONGENITAL [None]
  - CONGENITAL EYELID MALFORMATION [None]
  - DRUG EXPOSURE DURING PREGNANCY [None]
  - VISUAL ACUITY REDUCED [None]
